FAERS Safety Report 15366978 (Version 1)
Quarter: 2018Q3

REPORT INFORMATION
  Report Type: Spontaneous
  Country: DE (occurrence: DE)
  Receive Date: 20180910
  Receipt Date: 20180910
  Transmission Date: 20181010
  Serious: Yes (Other)
  Sender: FDA-Public Use
  Company Number: DE-PFIZER INC-2018355635

PATIENT
  Age: 51 Year

DRUGS (3)
  1. PALBOCICLIB [Suspect]
     Active Substance: PALBOCICLIB
     Dosage: UNK
     Route: 048
     Dates: start: 201802
  2. DENOSUMAB [Suspect]
     Active Substance: DENOSUMAB
     Dosage: UNK
     Dates: start: 201802
  3. FASLODEX [Suspect]
     Active Substance: FULVESTRANT
     Dosage: UNK
     Route: 030
     Dates: start: 201802

REACTIONS (2)
  - Neoplasm progression [Unknown]
  - Pleural effusion [Unknown]

NARRATIVE: CASE EVENT DATE: 201805
